FAERS Safety Report 7199089-9 (Version None)
Quarter: 2010Q4

REPORT INFORMATION
  Report Type: 
  Country: None (occurrence: None)
  Receive Date: 20101124
  Receipt Date: 20100731
  Transmission Date: 20110411
  Serious: Yes (Other)
  Sender: FDA-Public Use
  Company Number: SPV1-2010-01403

PATIENT
  Age: 44 Year
  Sex: Male
  Weight: 65.8 kg

DRUGS (2)
  1. CARBATROL [Suspect]
     Indication: CONVULSION
     Dosage: 200 MG, 2X/DAY:BID (2 CAPSULES BID), ORAL
     Route: 048
     Dates: start: 19980101
  2. VALIUM [Concomitant]

REACTIONS (4)
  - CONDITION AGGRAVATED [None]
  - CONVULSION [None]
  - HEADACHE [None]
  - PRODUCT QUALITY ISSUE [None]
